FAERS Safety Report 6290895-1 (Version None)
Quarter: 2009Q3

REPORT INFORMATION
  Report Type: 
  Country: None (occurrence: None)
  Receive Date: 20090730
  Receipt Date: 20090721
  Transmission Date: 20100115
  Serious: Yes (Other)
  Sender: FDA-Public Use
  Company Number: PHHY2009IT30353

PATIENT
  Sex: Male

DRUGS (1)
  1. ZOMETA [Suspect]

REACTIONS (4)
  - ECONOMIC PROBLEM [None]
  - GENERAL PHYSICAL HEALTH DETERIORATION [None]
  - OSTEONECROSIS [None]
  - SOCIAL PROBLEM [None]
